FAERS Safety Report 6235073-7 (Version None)
Quarter: 2009Q2

REPORT INFORMATION
  Report Type: 
  Country: None (occurrence: None)
  Receive Date: 20090618
  Receipt Date: 20090612
  Transmission Date: 20091009
  Serious: Yes (Death, Other)
  Sender: FDA-Public Use
  Company Number: PHHY2009JP21897

PATIENT
  Age: 73 Year
  Sex: Female

DRUGS (9)
  1. NEORAL [Suspect]
     Indication: PYODERMA GANGRENOSUM
     Dosage: 250 MG DAILY
     Route: 048
  2. GARASONE [Concomitant]
     Indication: PYODERMA GANGRENOSUM
     Dosage: 4 MG/DAY
  3. GARASONE [Concomitant]
     Dosage: 2 MG/DAY
  4. BUCILLAMINE [Concomitant]
     Indication: RHEUMATOID ARTHRITIS
     Dosage: 200 MG/DAY
     Route: 048
  5. METHOTREXATE [Concomitant]
     Indication: RHEUMATOID ARTHRITIS
     Dosage: 6 MG, QW
  6. METHOTREXATE [Concomitant]
     Dosage: 250 MG/DAY
     Route: 048
  7. PREDNISOLONE [Concomitant]
     Indication: RHEUMATOID ARTHRITIS
     Dosage: 2 MG/DAY
     Route: 048
  8. ENBREL [Concomitant]
     Indication: PYODERMA GANGRENOSUM
     Dosage: 25 MG/DAY, TWICE A WEEK
     Route: 058
  9. ENBREL [Concomitant]
     Dosage: 25 MG, QW
     Route: 058

REACTIONS (8)
  - ABDOMINAL DISTENSION [None]
  - ARTHRALGIA [None]
  - DIARRHOEA [None]
  - GASTROINTESTINAL DISORDER [None]
  - HEPATIC FUNCTION ABNORMAL [None]
  - JOINT SWELLING [None]
  - RHEUMATOID ARTHRITIS [None]
  - URINARY TRACT INFECTION [None]
